FAERS Safety Report 7621545-7 (Version None)
Quarter: 2011Q3

REPORT INFORMATION
  Report Type: 
  Country: None (occurrence: None)
  Receive Date: 20110719
  Receipt Date: 20110706
  Transmission Date: 20111222
  Serious: Yes (Hospitalization)
  Sender: FDA-Public Use
  Company Number: PHHY2011EC61693

PATIENT
  Sex: Female

DRUGS (9)
  1. DIOVAN [Suspect]
     Indication: HYPERTENSION
     Dosage: 160 MG, DAILY
     Route: 048
     Dates: start: 20010101
  2. LACTULOSA [Concomitant]
  3. ALDACTONE [Concomitant]
  4. LASIX [Concomitant]
  5. ANALGAN [Concomitant]
  6. HEPA-MERZ [Concomitant]
  7. NERVINETAS [Concomitant]
  8. INDERAL [Concomitant]
  9. RANITIDINE [Concomitant]

REACTIONS (5)
  - BLOOD POTASSIUM DECREASED [None]
  - ASTHENIA [None]
  - AMMONIA INCREASED [None]
  - MALAISE [None]
  - ANAEMIA [None]
